FAERS Safety Report 16970915 (Version 1)
Quarter: 2019Q4

REPORT INFORMATION
  Report Type: Spontaneous
  Country: PR (occurrence: PR)
  Receive Date: 20191028
  Receipt Date: 20191028
  Transmission Date: 20200122
  Serious: No
  Sender: FDA-Public Use
  Company Number: None

PATIENT
  Age: 73 Year
  Sex: Female
  Weight: 58.5 kg

DRUGS (1)
  1. MEROPENEM. [Suspect]
     Active Substance: MEROPENEM
     Indication: DECUBITUS ULCER
     Route: 041
     Dates: start: 20191001, end: 20191015

REACTIONS (1)
  - Rash [None]

NARRATIVE: CASE EVENT DATE: 20191015
